FAERS Safety Report 11980494 (Version 7)
Quarter: 2016Q4

REPORT INFORMATION
  Report Type: Spontaneous
  Country: US (occurrence: US)
  Receive Date: 20160129
  Receipt Date: 20161031
  Transmission Date: 20170206
  Serious: Yes (Death, Life-Threatening, Hospitalization, Other)
  Sender: FDA-Public Use
  Company Number: US-ELI_LILLY_AND_COMPANY-US201601010267

PATIENT
  Age: 66 Year
  Sex: Male

DRUGS (14)
  1. BACLOFEN. [Concomitant]
     Active Substance: BACLOFEN
  2. ANDROGEL [Suspect]
     Active Substance: TESTOSTERONE
     Dosage: 10 G, AT BEDTIME
     Route: 061
     Dates: start: 20111123
  3. DELATESTRYL [Suspect]
     Active Substance: TESTOSTERONE ENANTHATE
     Indication: ANDROGEN REPLACEMENT THERAPY
     Dosage: UNK, UNKNOWN
     Route: 030
  4. NORVASC [Concomitant]
     Active Substance: AMLODIPINE BESYLATE
  5. COLACE [Concomitant]
     Active Substance: DOCUSATE SODIUM
  6. SYNTHROID [Concomitant]
     Active Substance: LEVOTHYROXINE SODIUM
     Indication: HYPERTENSION
     Dosage: .075 MG, UNKNOWN
     Route: 048
     Dates: start: 1995, end: 2012
  7. FIXMYSKIN HEALING BALM VANILLA FRAGRANCE [Concomitant]
     Active Substance: HYDROCORTISONE
  8. PREVACID [Concomitant]
     Active Substance: LANSOPRAZOLE
  9. PROVIGIL [Concomitant]
     Active Substance: MODAFINIL
  10. PRINIVIL [Concomitant]
     Active Substance: LISINOPRIL
     Indication: HYPERTENSION
     Dosage: 10 MG, UNKNOWN
     Route: 048
     Dates: start: 1995, end: 2012
  11. SYNACORT [Concomitant]
     Active Substance: HYDROCORTISONE
  12. KEPPRA [Concomitant]
     Active Substance: LEVETIRACETAM
  13. AXIRON [Suspect]
     Active Substance: TESTOSTERONE
     Indication: ANDROGEN REPLACEMENT THERAPY
     Dosage: UNK UNK, QD
     Route: 065
     Dates: start: 200801, end: 201211
  14. ANDROGEL [Suspect]
     Active Substance: TESTOSTERONE
     Indication: ANDROGEN REPLACEMENT THERAPY
     Dosage: UNK, QD
     Route: 065
     Dates: start: 200901, end: 200906

REACTIONS (36)
  - Coma [Unknown]
  - Respiratory failure [Unknown]
  - Aspiration [Unknown]
  - Hypotension [Unknown]
  - Inappropriate antidiuretic hormone secretion [Unknown]
  - Encephalopathy [Unknown]
  - Septic shock [Unknown]
  - Hydrocephalus [Unknown]
  - Thrombocytopenia [Unknown]
  - Sepsis [Unknown]
  - Ischaemic hepatitis [Unknown]
  - Pneumonia aspiration [Unknown]
  - Septic shock [Unknown]
  - Hiccups [Unknown]
  - Gastric polyps [Unknown]
  - Respiratory distress [Unknown]
  - Pneumonia [Unknown]
  - Hypoxia [Unknown]
  - Aspiration [Unknown]
  - Haemorrhagic stroke [Unknown]
  - Bradycardia [Recovered/Resolved]
  - Pleural effusion [Unknown]
  - Urinary retention [Unknown]
  - Death [Fatal]
  - Respiratory arrest [Unknown]
  - Septic shock [Unknown]
  - Hydrocephalus [Unknown]
  - Ileus [Unknown]
  - Anaemia [Unknown]
  - Seizure [Unknown]
  - Mental status changes [Unknown]
  - Urinary tract infection [Unknown]
  - Bacteraemia [Unknown]
  - Hyponatraemia [Unknown]
  - Gait disturbance [Unknown]
  - Hypopituitarism [Unknown]

NARRATIVE: CASE EVENT DATE: 2011
